FAERS Safety Report 25676242 (Version 1)
Quarter: 2025Q3

REPORT INFORMATION
  Report Type: Report from Study
  Country: US (occurrence: US)
  Receive Date: 20250813
  Receipt Date: 20250813
  Transmission Date: 20251021
  Serious: Yes (Death)
  Sender: ALEXION PHARMACEUTICALS
  Company Number: US-ASTRAZENECA-202508USA008031US

PATIENT
  Sex: Female

DRUGS (4)
  1. BENRALIZUMAB [Suspect]
     Active Substance: BENRALIZUMAB
     Indication: Asthma
     Dosage: 30 MILLIGRAM, Q8W
     Dates: start: 202407
  2. BENRALIZUMAB [Suspect]
     Active Substance: BENRALIZUMAB
  3. DUPIXENT [Concomitant]
     Active Substance: DUPILUMAB
     Route: 065
  4. TRIKAFTA [Concomitant]
     Active Substance: ELEXACAFTOR\IVACAFTOR\TEZACAFTOR
     Route: 065

REACTIONS (1)
  - Death [Fatal]
